FAERS Safety Report 9525229 (Version 2)
Quarter: 2014Q2

REPORT INFORMATION
  Report Type: Spontaneous
  Country: US (occurrence: US)
  Receive Date: 20130916
  Receipt Date: 20140423
  Transmission Date: 20141212
  Serious: Yes (Hospitalization, Other)
  Sender: FDA-Public Use
  Company Number: US-ROCHE-1273445

PATIENT
  Sex: Female
  Weight: 59.02 kg

DRUGS (2)
  1. ZELBORAF [Suspect]
     Indication: MALIGNANT MELANOMA
     Route: 048
     Dates: start: 2012
  2. KEPPRA [Concomitant]

REACTIONS (11)
  - Transient ischaemic attack [Unknown]
  - Muscle atrophy [Not Recovered/Not Resolved]
  - Abasia [Unknown]
  - Skin cancer [Not Recovered/Not Resolved]
  - General physical health deterioration [Unknown]
  - Fall [Unknown]
  - Head injury [Unknown]
  - Convulsion [Unknown]
  - Memory impairment [Unknown]
  - Weight decreased [Not Recovered/Not Resolved]
  - Rash [Not Recovered/Not Resolved]
